FAERS Safety Report 25404414 (Version 1)
Quarter: 2025Q2

REPORT INFORMATION
  Report Type: Spontaneous
  Country: IT (occurrence: IT)
  Receive Date: 20250606
  Receipt Date: 20250606
  Transmission Date: 20250717
  Serious: Yes (Other)
  Sender: ROCHE
  Company Number: IT-ROCHE-10000304275

PATIENT

DRUGS (1)
  1. EMICIZUMAB [Suspect]
     Active Substance: EMICIZUMAB
     Indication: Product used for unknown indication
     Route: 065

REACTIONS (5)
  - Haemorrhage [Unknown]
  - Small intestinal haemorrhage [Unknown]
  - Haemobilia [Unknown]
  - Cholestasis [Unknown]
  - Orbital haematoma [Unknown]

NARRATIVE: CASE EVENT DATE: 20240807
